FAERS Safety Report 18147558 (Version 4)
Quarter: 2020Q3

REPORT INFORMATION
  Report Type: Spontaneous
  Country: US (occurrence: US)
  Receive Date: 20200813
  Receipt Date: 20200921
  Transmission Date: 20201103
  Serious: No
  Sender: FDA-Public Use
  Company Number: US-PFIZER INC-2020306329

PATIENT
  Age: 46 Year
  Sex: Female
  Weight: 115.67 kg

DRUGS (2)
  1. XELJANZ XR [Suspect]
     Active Substance: TOFACITINIB CITRATE
     Indication: RHEUMATOID ARTHRITIS
     Dosage: 11 MG, 1X/DAY
     Dates: start: 20200805
  2. XELJANZ XR [Suspect]
     Active Substance: TOFACITINIB CITRATE
     Dosage: 11 MG, DAILY
     Route: 048
     Dates: start: 20200807

REACTIONS (3)
  - Drug ineffective [Unknown]
  - Depressed mood [Unknown]
  - Diarrhoea [Unknown]

NARRATIVE: CASE EVENT DATE: 2020
